FAERS Safety Report 9434309 (Version 1)
Quarter: 2013Q3

REPORT INFORMATION
  Report Type: Spontaneous
  Country: US (occurrence: US)
  Receive Date: 20130801
  Receipt Date: 20130801
  Transmission Date: 20140515
  Serious: Yes (Other)
  Sender: FDA-Public Use
  Company Number: US-ASTRAZENECA-2013SE56425

PATIENT
  Age: 62 Year
  Sex: Female
  Weight: 72.6 kg

DRUGS (15)
  1. SYMBICORT [Suspect]
     Indication: ASTHMA
     Dosage: 160 MCG 2 PUFFS BID
     Route: 055
     Dates: start: 2003
  2. SYMBICORT [Suspect]
     Indication: EMPHYSEMA
     Dosage: 160 MCG 2 PUFFS BID
     Route: 055
     Dates: start: 2003
  3. OMEPRAZOLE ER (NON AZ) [Suspect]
     Indication: GASTROOESOPHAGEAL REFLUX DISEASE
     Route: 048
     Dates: start: 2007
  4. ADVAIR [Suspect]
     Route: 065
     Dates: start: 2003
  5. ADVAIR [Suspect]
     Route: 065
  6. VENTOLIN [Concomitant]
  7. SPIRIVA [Concomitant]
  8. BUPROPION [Concomitant]
     Indication: DEPRESSION
     Route: 048
     Dates: start: 2007
  9. LORAZEPAM [Concomitant]
     Indication: ANXIETY
     Route: 048
     Dates: start: 2013
  10. MONTELUKAST [Concomitant]
     Route: 048
     Dates: start: 2013
  11. HYDROXYZINE PAM [Concomitant]
     Indication: SLEEP DISORDER
     Route: 048
  12. BENICAR [Concomitant]
     Indication: HYPERTENSION
     Route: 048
     Dates: start: 2003
  13. METOPROLOL TARTRATE [Concomitant]
     Indication: BLOOD CHOLESTEROL ABNORMAL
     Route: 048
     Dates: start: 201304
  14. DILTIAZEM 24 HOUR ER [Concomitant]
     Indication: EXTRASYSTOLES
     Route: 048
     Dates: start: 2013
  15. UNKNOWN [Concomitant]
     Indication: THYROID DISORDER
     Route: 048

REACTIONS (6)
  - Renal impairment [Unknown]
  - Visual acuity reduced [Unknown]
  - Hypothyroidism [Unknown]
  - Dyspnoea [Unknown]
  - Drug dose omission [Unknown]
  - Intentional drug misuse [Unknown]
